FAERS Safety Report 5704003-6 (Version None)
Quarter: 2008Q2

REPORT INFORMATION
  Report Type: 
  Country: None (occurrence: None)
  Receive Date: 20080409
  Receipt Date: 20080325
  Transmission Date: 20081010
  Serious: Yes (Other)
  Sender: FDA-Public Use
  Company Number: B0515079A

PATIENT
  Age: 4 Year
  Sex: Male

DRUGS (3)
  1. BUSULPHAN (FORMULATION UNKNOWN) (BUSULFAN) (GENERIC) [Suspect]
     Indication: NEUROBLASTOMA
     Dosage: 16 MG/KG
  2. MELPHALAN (FORMULATION UNKNOWN) (MELPHALAN) (GENERIC) [Suspect]
     Indication: NEUROBLASTOMA
     Dosage: 180 MG/M2
  3. ETOPOSIDE [Suspect]
     Indication: NEUROBLASTOMA
     Dosage: 60 MG/KG

REACTIONS (10)
  - BILE DUCT NECROSIS [None]
  - HAEMATEMESIS [None]
  - HAEMATOCHEZIA [None]
  - HEPATIC FIBROSIS [None]
  - OESOPHAGEAL VARICES HAEMORRHAGE [None]
  - STEM CELL TRANSPLANT [None]
  - THROMBOCYTOPENIA [None]
  - VENOOCCLUSIVE DISEASE [None]
  - VENOOCCLUSIVE LIVER DISEASE [None]
  - WEIGHT INCREASED [None]
